FAERS Safety Report 8348439-6 (Version None)
Quarter: 2012Q2

REPORT INFORMATION
  Report Type: 
  Country: None (occurrence: None)
  Receive Date: 20120509
  Receipt Date: 20120504
  Transmission Date: 20120825
  Serious: Yes (Hospitalization)
  Sender: FDA-Public Use
  Company Number: US-TEVA-336628USA

PATIENT
  Age: 84 Year
  Sex: Male

DRUGS (1)
  1. TREANDA [Suspect]
     Route: 042
     Dates: start: 20110914, end: 20111014

REACTIONS (7)
  - RENAL FAILURE [None]
  - HYPERCALCAEMIA [None]
  - PETECHIAE [None]
  - CHRONIC LYMPHOCYTIC LEUKAEMIA [None]
  - THROMBOCYTOPENIA [None]
  - HYPERNATRAEMIA [None]
  - PURPURA [None]
